FAERS Safety Report 17301712 (Version 1)
Quarter: 2020Q1

REPORT INFORMATION
  Report Type: Spontaneous
  Country: US (occurrence: US)
  Receive Date: 20200122
  Receipt Date: 20200122
  Transmission Date: 20200409
  Serious: No
  Sender: FDA-Public Use
  Company Number: US-ENDO PHARMACEUTICALS INC-2019-105787

PATIENT
  Sex: Female

DRUGS (3)
  1. HYDROCODONE BITARTRATE AND ACETAMINOPHEN [Suspect]
     Active Substance: ACETAMINOPHEN\HYDROCODONE BITARTRATE
     Indication: SPINAL PAIN
     Dosage: 5/325 MG, UNKNOWN
     Route: 065
     Dates: start: 20190617, end: 20190618
  2. LORAZEPAM. [Concomitant]
     Active Substance: LORAZEPAM
     Indication: MIGRAINE
     Dosage: HALF OF 1 MG, UNKNOWN
     Route: 065
  3. BUTALBITAL [Concomitant]
     Active Substance: BUTALBITAL
     Indication: MIGRAINE
     Dosage: HALF A TABLET, UNKNOWN
     Route: 065

REACTIONS (4)
  - Fear [Unknown]
  - Product formulation issue [Unknown]
  - Product substitution issue [Unknown]
  - Dizziness [Unknown]
